FAERS Safety Report 16153898 (Version 7)
Quarter: 2019Q3

REPORT INFORMATION
  Report Type: Spontaneous
  Country: US (occurrence: US)
  Receive Date: 20190403
  Receipt Date: 20190807
  Transmission Date: 20191004
  Serious: Yes (Other)
  Sender: FDA-Public Use
  Company Number: US-PFIZER INC-2019140882

PATIENT
  Age: 61 Year
  Sex: Female

DRUGS (5)
  1. IBRANCE [Suspect]
     Active Substance: PALBOCICLIB
     Dosage: 100 MG, UNK
  2. LETROZOLE. [Concomitant]
     Active Substance: LETROZOLE
     Dosage: 2.5 MG, 1X/DAY
     Dates: start: 20181004, end: 20190619
  3. IBRANCE [Suspect]
     Active Substance: PALBOCICLIB
     Dosage: 75 MG, UNK
  4. IBRANCE [Suspect]
     Active Substance: PALBOCICLIB
     Dosage: 100 MG, CYCLIC  (EVERY DAY ON DAYS  1 TO 21  THEN  REST FOR  7 DAYS FOR  A  28  DAY CYCLE)
     Route: 048
  5. IBRANCE [Suspect]
     Active Substance: PALBOCICLIB
     Indication: BREAST CANCER FEMALE
     Dosage: 100 MG, UNK
     Dates: start: 20181126, end: 20190619

REACTIONS (34)
  - Second primary malignancy [Unknown]
  - Migraine [Not Recovered/Not Resolved]
  - Mood swings [Unknown]
  - Dry skin [Not Recovered/Not Resolved]
  - Fatigue [Not Recovered/Not Resolved]
  - Pelvic pain [Unknown]
  - Agitation [Unknown]
  - Mouth swelling [Unknown]
  - Eye disorder [Not Recovered/Not Resolved]
  - Lacrimation decreased [Unknown]
  - Feeling abnormal [Not Recovered/Not Resolved]
  - Arthralgia [Unknown]
  - Dysphagia [Unknown]
  - Malaise [Not Recovered/Not Resolved]
  - Rash [Unknown]
  - Hot flush [Unknown]
  - Pain in extremity [Unknown]
  - Dry mouth [Unknown]
  - Pain of skin [Not Recovered/Not Resolved]
  - Hypersomnia [Not Recovered/Not Resolved]
  - Myalgia [Unknown]
  - Odynophagia [Unknown]
  - Headache [Not Recovered/Not Resolved]
  - Peripheral swelling [Unknown]
  - Dyspnoea [Unknown]
  - Bone pain [Unknown]
  - Lip and/or oral cavity cancer [Unknown]
  - Cardiovascular disorder [Unknown]
  - Pruritus [Unknown]
  - Dry eye [Not Recovered/Not Resolved]
  - Insomnia [Unknown]
  - Pain [Unknown]
  - Oral pain [Unknown]
  - Oral infection [Unknown]

NARRATIVE: CASE EVENT DATE: 20181126
